FAERS Safety Report 22084429 (Version 6)
Quarter: 2023Q2

REPORT INFORMATION
  Report Type: Spontaneous
  Country: CN (occurrence: CN)
  Receive Date: 20230310
  Receipt Date: 20230419
  Transmission Date: 20230721
  Serious: Yes (Hospitalization, Other)
  Sender: FDA-Public Use
  Company Number: CN-SANOFI-01518020

PATIENT
  Age: 73 Year
  Sex: Male

DRUGS (2)
  1. TOUJEO [Suspect]
     Active Substance: INSULIN GLARGINE
     Indication: Diabetes mellitus
     Dosage: 18 IU, QD
     Route: 058
     Dates: start: 202211
  2. TOUJEO [Suspect]
     Active Substance: INSULIN GLARGINE
     Dosage: 28 IU, QD
     Route: 058
     Dates: start: 2023, end: 202303

REACTIONS (13)
  - Blindness unilateral [Not Recovered/Not Resolved]
  - Eye pain [Unknown]
  - Cataract [Unknown]
  - Condition aggravated [Unknown]
  - Eye swelling [Unknown]
  - Condition aggravated [Unknown]
  - Diabetes mellitus inadequate control [Unknown]
  - Drug ineffective [Unknown]
  - Retinopathy [Unknown]
  - Intraocular pressure test abnormal [Unknown]
  - Mental disorder [Unknown]
  - Eye disorder [Unknown]
  - Vision blurred [Not Recovered/Not Resolved]

NARRATIVE: CASE EVENT DATE: 20230101
